FAERS Safety Report 8818117 (Version 1)
Quarter: 2012Q4

REPORT INFORMATION
  Report Type: 
  Country: BR (occurrence: BR)
  Receive Date: 20121001
  Receipt Date: 20121001
  Transmission Date: 20130627
  Serious: Yes (Hospitalization, Other)
  Sender: FDA-Public Use
  Company Number: BR-ROXANE LABORATORIES, INC.-2012-EU-03248GD

PATIENT
  Sex: Male

DRUGS (10)
  1. PREDNISONE [Suspect]
     Indication: IMMUNOSUPPRESSANT DRUG THERAPY
     Dosage: 30 mg
     Dates: start: 200803
  2. MYCOPHENOLATE MOFETIL [Suspect]
     Indication: IMMUNOSUPPRESSANT DRUG THERAPY
     Dosage: 1.5 mg
     Dates: start: 200803
  3. TACROLIMUS [Suspect]
     Indication: IMMUNOSUPPRESSANT DRUG THERAPY
     Dosage: 8 mg
     Dates: start: 200803
  4. GANCICLOVIR [Suspect]
     Indication: ANTIVIRAL PROPHYLAXIS
     Dosage: 10 mg/kg (5 mg/kg twice daily)
     Route: 042
     Dates: start: 200803
  5. GANCICLOVIR [Suspect]
     Indication: CYTOMEGALOVIRUS INFECTION
     Dosage: 2.5 mg/kg (5 mg/kg on alternate days)
     Route: 042
  6. GANCICLOVIR [Suspect]
     Dosage: 5 mg/kg
     Route: 042
  7. GANCICLOVIR [Suspect]
     Dosage: 10 mg/kg (5 mg/kg twice daily)
     Route: 042
  8. GANCICLOVIR [Suspect]
     Dosage: 2000 mg
     Route: 048
  9. GANCICLOVIR [Suspect]
     Route: 042
  10. GANCICLOVIR [Suspect]
     Route: 042

REACTIONS (10)
  - Cytomegalovirus infection [Recovered/Resolved]
  - Leukopenia [Recovered/Resolved]
  - Thrombocytopenia [Recovered/Resolved]
  - Neutropenia [Unknown]
  - Pyrexia [Unknown]
  - Myalgia [Unknown]
  - Diarrhoea [Unknown]
  - Decreased appetite [Unknown]
  - Gastritis [Unknown]
  - Rhinorrhoea [Unknown]
